FAERS Safety Report 9294114 (Version 1)
Quarter: 2013Q1

REPORT INFORMATION
  Report Type: Spontaneous
  Country: US (occurrence: None)
  Receive Date: 20121226
  Receipt Date: 20121226
  Transmission Date: 20140127
  Serious: Yes (Hospitalization)
  Sender: FDA-Public Use
  Company Number: 360925

PATIENT
  Age: 70 Year
  Sex: Female
  Weight: 81.6 kg

DRUGS (7)
  1. LEVEMIR [Suspect]
     Indication: TYPE 2 DIABETES MELLITUS
     Dosage: 2011 TO ONGOING, SOLUTION FOR INJECTION, 50 U, QD AT NIGHT, SUBCUTANEOUS
  2. CELEXA /00582602/ (CITALOPRAM HYDROBROMIDE) [Concomitant]
  3. COREG (CARVEDILOL) [Concomitant]
  4. METFORMIN (METFORMIN) [Concomitant]
  5. NEURONTIN (GABAPENTIN) [Concomitant]
  6. FLEXERIL /00428402/ (CYCLOBENZAPRINE HYDROCHLORIDE) [Concomitant]
  7. EVISTA (RALOXIFENE HYDROCHLORIDE) [Concomitant]

REACTIONS (5)
  - Incorrect route of drug administration [None]
  - Blood magnesium decreased [None]
  - Dysgeusia [None]
  - Rash generalised [None]
  - Blood glucose decreased [None]
